FAERS Safety Report 4625821-1 (Version None)
Quarter: 2005Q2

REPORT INFORMATION
  Report Type: 
  Country: None (occurrence: None)
  Receive Date: 20050404
  Receipt Date: 20050323
  Transmission Date: 20051028
  Serious: Yes (Life-Threatening, Hospitalization)
  Sender: FDA-Public Use
  Company Number: US-BRISTOL-MYERS SQUIBB COMPANY-12913950

PATIENT
  Age: 81 Year
  Sex: Male

DRUGS (3)
  1. POTASSIUM CHLORIDE [Suspect]
     Route: 048
  2. PRINIVIL [Suspect]
     Route: 048
  3. BACTRIM DS [Suspect]

REACTIONS (3)
  - COMA [None]
  - ELECTROCARDIOGRAM T WAVE ABNORMAL [None]
  - RENAL DISORDER [None]
